FAERS Safety Report 5266971-9 (Version None)
Quarter: 2007Q1

REPORT INFORMATION
  Report Type: 
  Country: None (occurrence: None)
  Receive Date: 20070316
  Receipt Date: 20070305
  Transmission Date: 20070707
  Serious: Yes (Other)
  Sender: FDA-Public Use
  Company Number: US-ROCHE-464773

PATIENT
  Age: 49 Year
  Sex: Female
  Weight: 54.9 kg

DRUGS (5)
  1. PEGASYS [Suspect]
     Indication: HEPATITIS C
     Dosage: STRENGTH REPORTED AS 180 MCG/0.5 CC.
     Route: 058
     Dates: start: 20060721
  2. RIBAVIRIN [Suspect]
     Indication: HEPATITIS C
     Route: 048
     Dates: start: 20060721
  3. SULAR [Concomitant]
     Indication: HYPERTENSION
     Route: 048
  4. LEXAPRO [Concomitant]
     Indication: NERVOUSNESS
     Route: 048
     Dates: start: 20060715
  5. MEGACE [Concomitant]
     Dosage: DOSAGE REGIMEN REPORTED AS ONE TABLET DAILY.
     Route: 048
     Dates: start: 20060815

REACTIONS (4)
  - DECREASED APPETITE [None]
  - DEEP VEIN THROMBOSIS [None]
  - FATIGUE [None]
  - WEIGHT DECREASED [None]
